FAERS Safety Report 13633811 (Version 1)
Quarter: 2017Q2

REPORT INFORMATION
  Report Type: Spontaneous
  Country: US (occurrence: US)
  Receive Date: 20170531
  Receipt Date: 20170531
  Transmission Date: 20170830
  Serious: No
  Sender: FDA-Public Use
  Company Number: US-ASTELLAS-1579494

PATIENT
  Sex: Female

DRUGS (12)
  1. TARCEVA [Suspect]
     Active Substance: ERLOTINIB HYDROCHLORIDE
     Route: 048
  2. TARCEVA [Suspect]
     Active Substance: ERLOTINIB HYDROCHLORIDE
     Dosage: 1 TABLET DAILY BY MOUTH
     Route: 048
     Dates: start: 20150501
  3. AMOXICILLIN. [Concomitant]
     Active Substance: AMOXICILLIN
  4. GABAPENTIN. [Concomitant]
     Active Substance: GABAPENTIN
  5. HYALGAN [Concomitant]
     Active Substance: HYALURONATE SODIUM
  6. TARCEVA [Suspect]
     Active Substance: ERLOTINIB HYDROCHLORIDE
     Route: 048
     Dates: start: 20151222
  7. TARCEVA [Suspect]
     Active Substance: ERLOTINIB HYDROCHLORIDE
     Indication: LUNG NEOPLASM MALIGNANT
     Route: 048
     Dates: start: 20150507
  8. TARCEVA [Suspect]
     Active Substance: ERLOTINIB HYDROCHLORIDE
     Route: 048
     Dates: start: 20151103
  9. DICLOFENAC SODIUM. [Concomitant]
     Active Substance: DICLOFENAC SODIUM
  10. KEFLEX [Concomitant]
     Active Substance: CEPHALEXIN
  11. CLINDAMYCIN. [Concomitant]
     Active Substance: CLINDAMYCIN
  12. MYLANTA (ALUMINUM HYDROXIDE/MAGNESIUM HYDROXIDE) [Concomitant]
     Dosage: AS NEEDED
     Route: 065

REACTIONS (22)
  - Paraesthesia [Unknown]
  - Rash [Unknown]
  - Diarrhoea [Recovered/Resolved]
  - Skin exfoliation [Unknown]
  - Alopecia [Unknown]
  - Peripheral swelling [Unknown]
  - Hair growth abnormal [Unknown]
  - Dry mouth [Unknown]
  - Pain in extremity [Unknown]
  - Arthritis [Unknown]
  - Insomnia [Unknown]
  - Acne [Unknown]
  - Skin irritation [Unknown]
  - Arthralgia [Unknown]
  - Depression [Unknown]
  - Fatigue [Unknown]
  - Gingival bleeding [Unknown]
  - Skin exfoliation [Recovering/Resolving]
  - Nail avulsion [Unknown]
  - Hair texture abnormal [Unknown]
  - Nail growth abnormal [Unknown]
  - Onychoclasis [Unknown]
